FAERS Safety Report 20956364 (Version 1)
Quarter: 2022Q2

REPORT INFORMATION
  Report Type: Spontaneous
  Country: US (occurrence: None)
  Receive Date: 20220613
  Receipt Date: 20220613
  Transmission Date: 20220721
  Serious: Yes (unspecified)
  Sender: FDA-Public Use
  Company Number: None

PATIENT
  Age: 35 Month
  Sex: Female
  Weight: 11.25 kg

DRUGS (1)
  1. NEUTROGENA BEACH DEFENSE WATER PLUS SUN PROTECTION SUNSCREEN BROAD SPE [Suspect]
     Active Substance: AVOBENZONE\HOMOSALATE\OCTISALATE\OCTOCRYLENE
     Indication: Prophylaxis against solar radiation
     Dosage: OTHER STRENGTH : 6.5 OZ;?FREQUENCY : DAILY;?
     Route: 061

REACTIONS (4)
  - Rash erythematous [None]
  - Lacrimation increased [None]
  - Periorbital swelling [None]
  - Recalled product administered [None]

NARRATIVE: CASE EVENT DATE: 20220609
